FAERS Safety Report 17106831 (Version 1)
Quarter: 2019Q4

REPORT INFORMATION
  Report Type: Spontaneous
  Country: SE (occurrence: SE)
  Receive Date: 20191203
  Receipt Date: 20191203
  Transmission Date: 20200122
  Serious: Yes (Death, Hospitalization)
  Sender: FDA-Public Use
  Company Number: SE-CANTON LABORATORIES, LLC-2077445

PATIENT
  Sex: Male

DRUGS (1)
  1. NAPROSYN [Suspect]
     Active Substance: NAPROXEN
     Indication: JOINT SWELLING
     Route: 065

REACTIONS (4)
  - Dyspnoea [Fatal]
  - Hypersensitivity [Fatal]
  - Cardiac arrest [Fatal]
  - Contraindicated product administered [Fatal]
